FAERS Safety Report 25363461 (Version 4)
Quarter: 2025Q3

REPORT INFORMATION
  Report Type: Spontaneous
  Country: JP (occurrence: JP)
  Receive Date: 20250527
  Receipt Date: 20250722
  Transmission Date: 20251020
  Serious: Yes (Hospitalization, Other)
  Sender: DAIICHI
  Company Number: JP-DSJP-DS-2025-142920-JP

PATIENT
  Age: 8 Decade
  Sex: Female

DRUGS (2)
  1. DATROWAY [Suspect]
     Active Substance: DATOPOTAMAB DERUXTECAN-DLNK
     Indication: Hormone receptor positive HER2 negative breast cancer
     Dosage: 6.0 MG/KG, ONCE EVERY 3 WK
     Route: 041
     Dates: start: 20250509, end: 2025
  2. DATROWAY [Suspect]
     Active Substance: DATOPOTAMAB DERUXTECAN-DLNK
     Dosage: 6.0 MG/KG, ONCE EVERY 3 WK
     Route: 041
     Dates: start: 2025, end: 20250715

REACTIONS (3)
  - Metastases to central nervous system [Recovered/Resolved]
  - Lacrimation increased [Unknown]
  - Disease progression [Unknown]

NARRATIVE: CASE EVENT DATE: 20250101
